FAERS Safety Report 15015880 (Version 1)
Quarter: 2018Q2

REPORT INFORMATION
  Report Type: Spontaneous
  Country: US (occurrence: US)
  Receive Date: 20180530
  Receipt Date: 20180530
  Transmission Date: 20180711
  Serious: Yes (Disabling)
  Sender: FDA-Public Use
  Company Number: None

PATIENT
  Age: 62 Year
  Sex: Female
  Weight: 61.65 kg

DRUGS (2)
  1. MESALAMINE TAB 1.2 GM DR [Suspect]
     Active Substance: MESALAMINE
     Indication: COLITIS ULCERATIVE
     Dosage: ?          QUANTITY:2 TABLET(S);?
     Route: 048
     Dates: start: 20180502, end: 20180509
  2. LIALDA [Concomitant]
     Active Substance: MESALAMINE

REACTIONS (7)
  - Defaecation urgency [None]
  - Product solubility abnormal [None]
  - Product substitution issue [None]
  - Haematochezia [None]
  - Diarrhoea [None]
  - Mucous stools [None]
  - Product coating issue [None]

NARRATIVE: CASE EVENT DATE: 20180502
